FAERS Safety Report 10250889 (Version 2)
Quarter: 2014Q2

REPORT INFORMATION
  Report Type: Report from Study
  Country: DE (occurrence: DE)
  Receive Date: 20140620
  Receipt Date: 20140620
  Transmission Date: 20141212
  Serious: Yes (Hospitalization)
  Sender: FDA-Public Use
  Company Number: DE-BRISTOL-MYERS SQUIBB COMPANY-20918603

PATIENT
  Age: 71 Year
  Sex: Female

DRUGS (4)
  1. BLINDED: IPILIMUMAB [Suspect]
     Indication: SMALL CELL LUNG CANCER
     Route: 042
     Dates: start: 20140424
  2. CARBOPLATIN [Suspect]
     Indication: SMALL CELL LUNG CANCER
     Dosage: DOSE:AUC5
     Route: 042
     Dates: start: 20140306, end: 20140514
  3. ETOPOSIDE [Suspect]
     Indication: SMALL CELL LUNG CANCER
     Dosage: DOSE:100MG/M2
     Route: 042
     Dates: start: 20140306, end: 20140516
  4. BLINDED: PLACEBO [Suspect]
     Indication: SMALL CELL LUNG CANCER
     Route: 042
     Dates: start: 20140424

REACTIONS (2)
  - Anaemia [Recovered/Resolved]
  - Back pain [Recovered/Resolved]
